FAERS Safety Report 24285050 (Version 1)
Quarter: 2024Q3

REPORT INFORMATION
  Report Type: Spontaneous
  Country: US (occurrence: US)
  Receive Date: 20240905
  Receipt Date: 20240905
  Transmission Date: 20241016
  Serious: Yes (Other)
  Sender: IMMUNOGEN
  Company Number: US-IMMUNOGEN, INC.-US-IMGN-24-00662

PATIENT
  Age: 63 Year
  Sex: Female

DRUGS (2)
  1. ELAHERE [Suspect]
     Active Substance: MIRVETUXIMAB SORAVTANSINE-GYNX
     Indication: Ovarian cancer
     Dosage: UNK UNK, 6, 3W
     Route: 042
     Dates: start: 20240722, end: 20240812
  2. ELAHERE [Suspect]
     Active Substance: MIRVETUXIMAB SORAVTANSINE-GYNX
     Dosage: UNK UNK, 5, 3W
     Route: 042
     Dates: start: 20240904

REACTIONS (3)
  - Disease progression [Not Recovered/Not Resolved]
  - Gastrointestinal toxicity [Recovered/Resolved]
  - Gastroenteritis Escherichia coli [Recovered/Resolved]

NARRATIVE: CASE EVENT DATE: 20240722
